FAERS Safety Report 24109481 (Version 1)
Quarter: 2024Q3

REPORT INFORMATION
  Report Type: Spontaneous
  Country: DE (occurrence: DE)
  Receive Date: 20240718
  Receipt Date: 20240718
  Transmission Date: 20241017
  Serious: Yes (Hospitalization, Other)
  Sender: ORGANON
  Company Number: DE-RDY-LIT/DEU/24/0009820

PATIENT
  Age: 25 Year
  Sex: Male

DRUGS (4)
  1. EZETIMIBE [Suspect]
     Active Substance: EZETIMIBE
     Indication: Pancreatitis acute
     Dosage: 10 MG DAILY
  2. VOLANESORSEN [Concomitant]
     Active Substance: VOLANESORSEN
     Indication: Pancreatitis acute
     Dosage: BIWEEKLY ADMINISTRATIONS
  3. VOLANESORSEN [Concomitant]
     Active Substance: VOLANESORSEN
     Dosage: WEEKLY INJECTIONS
  4. FENOFIBRATE [Concomitant]
     Active Substance: FENOFIBRATE
     Indication: Pancreatitis acute
     Dosage: 160 MG MICRONIZED DAILY

REACTIONS (1)
  - Drug ineffective for unapproved indication [Unknown]
